FAERS Safety Report 8482842-9 (Version None)
Quarter: 2012Q2

REPORT INFORMATION
  Report Type: 
  Country: None (occurrence: None)
  Receive Date: 20120626
  Receipt Date: 20120621
  Transmission Date: 20120825
  Serious: Yes (Death, Hospitalization, Other)
  Sender: FDA-Public Use
  Company Number: 2011SP051883

PATIENT
  Age: 72 Year
  Sex: Female
  Weight: 103 kg

DRUGS (7)
  1. K CL TAB [Concomitant]
  2. ESCITALOPRAM OXALATE [Suspect]
     Indication: SCHIZOAFFECTIVE DISORDER
     Dosage: 30 MG;QD;PO
     Route: 048
     Dates: start: 20050101, end: 20111023
  3. FERRO DURETTER [Concomitant]
  4. LITHIUM CITRATE [Suspect]
     Indication: SCHIZOAFFECTIVE DISORDER
     Dosage: PO
     Route: 048
     Dates: start: 20050101, end: 20111023
  5. ZIPRASIDONE HYDROCHLORIDE [Suspect]
     Indication: SCHIZOAFFECTIVE DISORDER
     Dosage: 40 MG;BID;PO
     Route: 048
     Dates: start: 20050101, end: 20111023
  6. MIRTAZAPINE [Suspect]
     Indication: SCHIZOAFFECTIVE DISORDER
     Dosage: 30 MG;QD;PO
     Route: 048
     Dates: start: 20110101, end: 20111023
  7. ALPRAZOLAM [Concomitant]

REACTIONS (14)
  - FALL [None]
  - HUMERUS FRACTURE [None]
  - RENAL FAILURE [None]
  - ORGAN FAILURE [None]
  - HEPATIC CIRRHOSIS [None]
  - CARDIAC HYPERTROPHY [None]
  - HYPERVENTILATION [None]
  - NEUROLEPTIC MALIGNANT SYNDROME [None]
  - LACTIC ACIDOSIS [None]
  - MULTI-ORGAN FAILURE [None]
  - RHABDOMYOLYSIS [None]
  - LACUNAR INFARCTION [None]
  - OSTEOSYNTHESIS [None]
  - DEPRESSED LEVEL OF CONSCIOUSNESS [None]
